FAERS Safety Report 7560601-9 (Version None)
Quarter: 2011Q2

REPORT INFORMATION
  Report Type: 
  Country: None (occurrence: None)
  Receive Date: 20110621
  Receipt Date: 20100803
  Transmission Date: 20111010
  Serious: No
  Sender: FDA-Public Use
  Company Number: US-ASTRAZENECA-2010SE36214

PATIENT
  Sex: Male

DRUGS (1)
  1. ENTOCORT EC [Suspect]
     Route: 048

REACTIONS (1)
  - PANCREATITIS [None]
